FAERS Safety Report 8743353 (Version 2)
Quarter: 2012Q4

REPORT INFORMATION
  Report Type: 
  Country: US (occurrence: US)
  Receive Date: 20120824
  Receipt Date: 20120831
  Transmission Date: 20130627
  Serious: Yes (Hospitalization, Other)
  Sender: FDA-Public Use
  Company Number: US-ACTELION-A-NJ2012-70059

PATIENT
  Age: 53 Year
  Sex: Female

DRUGS (1)
  1. VELETRI [Suspect]
     Indication: DIGITAL ULCER
     Dosage: 2.12 ng/kg, per min
     Route: 041
     Dates: start: 20120626

REACTIONS (8)
  - Raynaud^s phenomenon [Recovering/Resolving]
  - Sclerodactylia [Recovering/Resolving]
  - Osteomyelitis [Recovering/Resolving]
  - Skin ulcer [Recovering/Resolving]
  - Pain in extremity [Recovering/Resolving]
  - Erythema [Recovering/Resolving]
  - Secretion discharge [Recovering/Resolving]
  - Catheter site haemorrhage [Recovering/Resolving]
